FAERS Safety Report 7097797-1 (Version None)
Quarter: 2010Q4

REPORT INFORMATION
  Report Type: 
  Country: None (occurrence: None)
  Receive Date: 20101112
  Receipt Date: 20101104
  Transmission Date: 20110411
  Serious: Yes (Hospitalization)
  Sender: FDA-Public Use
  Company Number: US-RANBAXY-2010US-39276

PATIENT

DRUGS (4)
  1. TOPIRAMATE [Suspect]
     Indication: MIGRAINE PROPHYLAXIS
     Dosage: 25 MG, BID
     Route: 048
  2. TOPIRAMATE [Suspect]
     Dosage: 50 MG, BID
     Route: 048
  3. TOPIRAMATE [Suspect]
     Dosage: 25 MG, BID
     Route: 048
  4. TOPIRAMATE [Suspect]
     Dosage: 25 MG, QD
     Route: 048

REACTIONS (2)
  - MYOCLONUS [None]
  - PSYCHOTIC DISORDER [None]
